FAERS Safety Report 5513920-1 (Version None)
Quarter: 2007Q4

REPORT INFORMATION
  Report Type: 
  Country: None (occurrence: None)
  Receive Date: 20071109
  Receipt Date: 20071109
  Transmission Date: 20080405
  Serious: No
  Sender: FDA-Public Use
  Company Number: None

PATIENT
  Age: 76 Year
  Sex: Female

DRUGS (1)
  1. DEMEROL [Suspect]
     Indication: FRACTURE
     Dosage: 25MG ONCE IV
     Route: 042

REACTIONS (2)
  - PRURITUS [None]
  - VISUAL DISTURBANCE [None]
